FAERS Safety Report 5091342-8 (Version None)
Quarter: 2006Q3

REPORT INFORMATION
  Report Type: 
  Country: None (occurrence: None)
  Receive Date: 20060829
  Receipt Date: 20060418
  Transmission Date: 20061208
  Serious: No
  Sender: FDA-Public Use
  Company Number: US-GLAXOSMITHKLINE-A0602178A

PATIENT
  Age: 61 Year
  Sex: Male

DRUGS (8)
  1. BECONASE [Suspect]
     Dosage: 4SPR TWICE PER DAY
     Route: 045
     Dates: start: 20050519
  2. COLCHICINE [Concomitant]
  3. ZYRTEC [Concomitant]
  4. ISOSORBIDE DINITRATE [Concomitant]
  5. OMEPRAZOLE [Concomitant]
  6. KLOR-CON [Concomitant]
  7. DILTIAZEM HCL [Concomitant]
  8. GLIPIZIDE [Concomitant]

REACTIONS (1)
  - DRUG INEFFECTIVE [None]
